FAERS Safety Report 24624368 (Version 1)
Quarter: 2024Q4

REPORT INFORMATION
  Report Type: Spontaneous
  Country: US (occurrence: None)
  Receive Date: 20241114
  Receipt Date: 20241114
  Transmission Date: 20250114
  Serious: Yes (Hospitalization)
  Sender: Public
  Company Number: None

PATIENT
  Sex: Female

DRUGS (4)
  1. TOBI PODHALER [Suspect]
     Active Substance: TOBRAMYCIN
     Indication: Cystic fibrosis lung
     Route: 055
     Dates: start: 20241024
  2. AQUADEKS CAP [Concomitant]
  3. NAPROXEN TAB250MG [Concomitant]
  4. PULMOZYME [Concomitant]

REACTIONS (11)
  - Drug withdrawal syndrome [None]
  - Dyspnoea [None]
  - Haemoptysis [None]
  - Candida infection [None]
  - Exercise tolerance decreased [None]
  - Nasal inflammation [None]
  - Nasal congestion [None]
  - Cough [None]
  - Productive cough [None]
  - Wheezing [None]
  - Sleep disorder [None]
